FAERS Safety Report 7220454-5 (Version None)
Quarter: 2011Q1

REPORT INFORMATION
  Report Type: 
  Country: None (occurrence: None)
  Receive Date: 20110111
  Receipt Date: 20110104
  Transmission Date: 20110831
  Serious: Yes (Hospitalization)
  Sender: FDA-Public Use
  Company Number: PHHO2011US00561

PATIENT
  Sex: Male
  Weight: 121 kg

DRUGS (2)
  1. CERTICAN [Suspect]
     Indication: HEART TRANSPLANT
     Dosage: 0.5 MG, BID
     Route: 048
     Dates: start: 19990101, end: 20101201
  2. CELLCEPT [Suspect]
     Indication: HEART TRANSPLANT
     Dosage: 500 MG, BID
     Route: 048
     Dates: start: 20101216

REACTIONS (4)
  - ABDOMINAL PAIN [None]
  - ABDOMINAL HERNIA [None]
  - ABDOMINAL HERNIA REPAIR [None]
  - HERNIA OBSTRUCTIVE [None]
